FAERS Safety Report 15907730 (Version 1)
Quarter: 2019Q1

REPORT INFORMATION
  Report Type: Spontaneous
  Country: US (occurrence: US)
  Receive Date: 20190204
  Receipt Date: 20190204
  Transmission Date: 20190417
  Serious: No
  Sender: FDA-Public Use
  Company Number: None

PATIENT
  Age: 47 Year
  Sex: Female
  Weight: 85.5 kg

DRUGS (3)
  1. LEVOTHRROXINE [Concomitant]
  2. GABAPENTIN. [Suspect]
     Active Substance: GABAPENTIN
     Indication: SPINAL DISORDER
     Dosage: ?          QUANTITY:75 CAPSULE(S);?
     Route: 048
     Dates: start: 20180702, end: 20181102
  3. AMPOLODRINE [Concomitant]

REACTIONS (5)
  - Menstruation irregular [None]
  - Trichorrhexis [None]
  - Alopecia [None]
  - Feeling abnormal [None]
  - Somnolence [None]

NARRATIVE: CASE EVENT DATE: 20180702
